FAERS Safety Report 24957093 (Version 1)
Quarter: 2025Q1

REPORT INFORMATION
  Report Type: Spontaneous
  Country: CZ (occurrence: CZ)
  Receive Date: 20250211
  Receipt Date: 20250211
  Transmission Date: 20250409
  Serious: Yes (Hospitalization, Other)
  Sender: VERTEX
  Company Number: CZ-VERTEX PHARMACEUTICALS-2025-001867

PATIENT
  Sex: Female
  Weight: 63 kg

DRUGS (15)
  1. ELEXACAFTOR\IVACAFTOR\TEZACAFTOR [Suspect]
     Active Substance: ELEXACAFTOR\IVACAFTOR\TEZACAFTOR
     Indication: Cystic fibrosis
     Route: 048
     Dates: start: 20211007, end: 20241009
  2. KALYDECO [Suspect]
     Active Substance: IVACAFTOR
     Indication: Cystic fibrosis
     Route: 048
     Dates: start: 20211007, end: 20241009
  3. PULMOZYME [Concomitant]
     Active Substance: DORNASE ALFA
  4. SODIUM CHLORIDE [Concomitant]
     Active Substance: SODIUM CHLORIDE
  5. TOBRAMYCIN [Concomitant]
     Active Substance: TOBRAMYCIN
  6. Colomycin [Concomitant]
  7. SERETIDE [Concomitant]
     Active Substance: FLUTICASONE PROPIONATE\SALMETEROL XINAFOATE
  8. VENTOLIN [Concomitant]
     Active Substance: ALBUTEROL SULFATE
  9. CREON [Concomitant]
     Active Substance: PANCRELIPASE AMYLASE\PANCRELIPASE LIPASE\PANCRELIPASE PROTEASE
  10. URSODIOL [Concomitant]
     Active Substance: URSODIOL
  11. POTASSIUM CHLORIDE [Concomitant]
     Active Substance: POTASSIUM CHLORIDE
  12. ESSENTIALE FORTE [Concomitant]
  13. OMEPRAZOLE [Concomitant]
     Active Substance: OMEPRAZOLE
  14. NAC AL [Concomitant]
  15. CALCIUM CARBONATE [Concomitant]
     Active Substance: CALCIUM CARBONATE

REACTIONS (9)
  - Hepatotoxicity [Unknown]
  - Hepatosplenomegaly [Unknown]
  - Hepatic fibrosis [Unknown]
  - Hepatitis alcoholic [Unknown]
  - Haemangioma [Unknown]
  - Coagulopathy [Recovering/Resolving]
  - Portal hypertension [Unknown]
  - Cholelithiasis [Not Recovered/Not Resolved]
  - Anxiety [Unknown]

NARRATIVE: CASE EVENT DATE: 20240101
